FAERS Safety Report 10017410 (Version 1)
Quarter: 2014Q1

REPORT INFORMATION
  Report Type: Spontaneous
  Country: US (occurrence: US)
  Receive Date: 20140318
  Receipt Date: 20140318
  Transmission Date: 20141002
  Serious: No
  Sender: FDA-Public Use
  Company Number: US-PFIZER INC-2014076497

PATIENT
  Age: 67 Year
  Sex: Female
  Weight: 70.75 kg

DRUGS (3)
  1. LYRICA [Suspect]
     Indication: RESTLESS LEGS SYNDROME
     Dosage: 25 MG, DAILY
     Dates: start: 20140305
  2. LISINOPRIL [Concomitant]
     Indication: HYPERTENSION
     Dosage: UNK
  3. MIRAPEX [Concomitant]
     Indication: RESTLESS LEGS SYNDROME
     Dosage: 0.5 MG, UNK
     Dates: end: 201403

REACTIONS (1)
  - Drug ineffective for unapproved indication [Unknown]
